FAERS Safety Report 14168151 (Version 2)
Quarter: 2017Q4

REPORT INFORMATION
  Report Type: Spontaneous
  Country: US (occurrence: US)
  Receive Date: 20171108
  Receipt Date: 20171114
  Transmission Date: 20180321
  Serious: Yes (Other)
  Sender: FDA-Public Use
  Company Number: US-ROCHE-2021212

PATIENT
  Age: 26 Year
  Sex: Male
  Weight: 66.4 kg

DRUGS (2)
  1. ACTIVASE [Suspect]
     Active Substance: ALTEPLASE
     Dosage: SINGLE DOSE
     Route: 042
     Dates: start: 20171105, end: 20171105
  2. ACTIVASE [Suspect]
     Active Substance: ALTEPLASE
     Indication: CEREBROVASCULAR ACCIDENT
     Dosage: STANDARD DOSE ;ONGOING: UNKNOWN
     Route: 042
     Dates: start: 20171102

REACTIONS (3)
  - Cerebral haemorrhage [Recovered/Resolved]
  - Haemorrhagic transformation stroke [Unknown]
  - Generalised tonic-clonic seizure [Unknown]

NARRATIVE: CASE EVENT DATE: 20171102
